FAERS Safety Report 24388102 (Version 1)
Quarter: 2024Q4

REPORT INFORMATION
  Report Type: Spontaneous
  Country: US (occurrence: None)
  Receive Date: 20241002
  Receipt Date: 20241002
  Transmission Date: 20250115
  Serious: Yes (Hospitalization)
  Sender: Public
  Company Number: None

PATIENT
  Sex: Male

DRUGS (4)
  1. ONDANSETRON HYDROCHLORIDE [Suspect]
     Active Substance: ONDANSETRON HYDROCHLORIDE
     Indication: Nausea
     Dosage: OTHER FREQUENCY : EVERY8HOUR ASNEEDED;?
     Route: 048
     Dates: start: 202310
  2. ONDANSETRON HYDROCHLORIDE [Suspect]
     Active Substance: ONDANSETRON HYDROCHLORIDE
     Indication: Lung neoplasm malignant
  3. ONDANSETRON I-CL [Concomitant]
  4. TAGRISSO [Concomitant]

REACTIONS (1)
  - Pneumonitis [None]
